FAERS Safety Report 11050860 (Version 2)
Quarter: 2015Q2

REPORT INFORMATION
  Report Type: Spontaneous
  Country: US (occurrence: US)
  Receive Date: 20150421
  Receipt Date: 20150512
  Transmission Date: 20150821
  Serious: No
  Sender: FDA-Public Use
  Company Number: US-LEO PHARMA-233669

PATIENT
  Sex: Female

DRUGS (1)
  1. PICATO [Suspect]
     Active Substance: INGENOL MEBUTATE
     Indication: PRECANCEROUS SKIN LESION

REACTIONS (5)
  - Application site exfoliation [Recovered/Resolved]
  - Incorrect drug administration duration [Unknown]
  - Application site haemorrhage [Recovered/Resolved]
  - Application site ulcer [Recovered/Resolved]
  - Application site erythema [Not Recovered/Not Resolved]
